FAERS Safety Report 5599759-X (Version None)
Quarter: 2008Q1

REPORT INFORMATION
  Report Type: 
  Country: None (occurrence: None)
  Receive Date: 20080123
  Receipt Date: 20080116
  Transmission Date: 20080703
  Serious: Yes (Hospitalization)
  Sender: FDA-Public Use
  Company Number: FR-BRISTOL-MYERS SQUIBB COMPANY-14044341

PATIENT
  Age: 10 Year
  Sex: Male
  Weight: 18 kg

DRUGS (12)
  1. LOPRIL TABS 25 MG [Suspect]
     Indication: HYPERTENSION
     Route: 048
     Dates: start: 20030401, end: 20070601
  2. LOPRIL TABS 25 MG [Suspect]
     Indication: CARDIAC FAILURE
     Route: 048
     Dates: start: 20030401, end: 20070601
  3. IMUREL [Suspect]
     Indication: AZOTAEMIA
     Route: 048
     Dates: start: 20030401
  4. ADALAT [Suspect]
     Indication: HYPERTENSION
     Route: 048
     Dates: start: 20021001, end: 20071201
  5. ADALAT [Suspect]
     Indication: CARDIAC FAILURE
     Route: 048
     Dates: start: 20021001, end: 20071201
  6. CORTANCYL [Suspect]
     Route: 048
     Dates: start: 20020301, end: 20030401
  7. CARVEDILOL [Suspect]
     Indication: HYPERTENSION
     Route: 048
     Dates: start: 20041001, end: 20060701
  8. CARVEDILOL [Suspect]
     Indication: CARDIAC FAILURE
     Route: 048
     Dates: start: 20041001, end: 20060701
  9. SECTRAL [Suspect]
     Indication: HYPERTENSION
     Dosage: THERAPY DATE: OCT-2004 TO JULY-2006
     Route: 048
     Dates: start: 20060701
  10. SECTRAL [Suspect]
     Indication: CARDIAC FAILURE
     Dosage: THERAPY DATE: OCT-2004 TO JULY-2006
     Route: 048
     Dates: start: 20060701
  11. LASIX [Suspect]
     Indication: HYPERTENSION
     Route: 048
     Dates: start: 20040401
  12. LASIX [Suspect]
     Indication: CARDIAC FAILURE
     Route: 048
     Dates: start: 20040401

REACTIONS (2)
  - ARTHRITIS [None]
  - OSTEONECROSIS [None]
